FAERS Safety Report 7546597-4 (Version None)
Quarter: 2011Q2

REPORT INFORMATION
  Report Type: 
  Country: None (occurrence: None)
  Receive Date: 20110614
  Receipt Date: 20110601
  Transmission Date: 20111010
  Serious: Yes (Other)
  Sender: FDA-Public Use
  Company Number: US-ELI_LILLY_AND_COMPANY-US201103004811

PATIENT
  Sex: Female

DRUGS (2)
  1. HUMALOG MIX 75/25 [Suspect]
     Indication: DIABETES MELLITUS
     Dosage: 30 U, TID
     Dates: start: 20040101
  2. ASPIRIN [Concomitant]
     Dosage: UNK

REACTIONS (4)
  - CORONARY ARTERIAL STENT INSERTION [None]
  - GLAUCOMA [None]
  - VISUAL ACUITY REDUCED [None]
  - MALAISE [None]
